FAERS Safety Report 10775727 (Version 2)
Quarter: 2015Q1

REPORT INFORMATION
  Report Type: Spontaneous
  Country: DE (occurrence: JP)
  Receive Date: 20150209
  Receipt Date: 20150226
  Transmission Date: 20150721
  Serious: Yes (Life-Threatening, Hospitalization, Other)
  Sender: FDA-Public Use
  Company Number: JP-BRACCO-008809

PATIENT
  Age: 67 Year
  Sex: Female
  Weight: 52 kg

DRUGS (1)
  1. IOPAMIRON [Suspect]
     Active Substance: IOPAMIDOL
     Indication: COMPUTERISED TOMOGRAM
     Route: 042
     Dates: start: 20150129, end: 20150129

REACTIONS (4)
  - Cardiac arrest [Recovering/Resolving]
  - Anaphylactic shock [Recovering/Resolving]
  - Cardiac tamponade [Recovering/Resolving]
  - Cardiac contusion [Recovering/Resolving]

NARRATIVE: CASE EVENT DATE: 20150129
